FAERS Safety Report 7124163-2 (Version None)
Quarter: 2010Q4

REPORT INFORMATION
  Report Type: 
  Country: None (occurrence: None)
  Receive Date: 20101126
  Receipt Date: 20101115
  Transmission Date: 20110411
  Serious: Yes (Hospitalization, Other)
  Sender: FDA-Public Use
  Company Number: PHHY2010DE78057

PATIENT
  Sex: Female

DRUGS (7)
  1. DIOVAN [Suspect]
     Dosage: 160 MG ONCE DAILY
  2. DIOVAN HCT [Suspect]
     Dosage: 160/12.5 MG ONCE DAILY
     Dates: start: 20100701
  3. FORADIL [Suspect]
     Indication: MUSCULOSKELETAL PAIN
     Dosage: TWICE DAILY
  4. WATER TABLET [Concomitant]
     Dosage: 10 MG (1-1/2-0)
  5. WATER TABLET [Concomitant]
     Dosage: 10 MG (1/2-0-0)
  6. WATER TABLET [Concomitant]
     Dosage: 5 MG (HALF TABLET PER DAY)
  7. CORTISONE [Concomitant]
     Indication: MUSCULOSKELETAL PAIN

REACTIONS (10)
  - ABDOMINAL PAIN UPPER [None]
  - CARDIAC VALVE DISEASE [None]
  - CARDIOVASCULAR DISORDER [None]
  - DIARRHOEA [None]
  - DYSPNOEA [None]
  - EMPHYSEMA [None]
  - MICTURITION URGENCY [None]
  - MUSCULOSKELETAL PAIN [None]
  - NAUSEA [None]
  - OEDEMA PERIPHERAL [None]
